FAERS Safety Report 8133336-1 (Version None)
Quarter: 2012Q1

REPORT INFORMATION
  Report Type: 
  Country: None (occurrence: None)
  Receive Date: 20120213
  Receipt Date: 20120207
  Transmission Date: 20120608
  Serious: Yes (Other)
  Sender: FDA-Public Use
  Company Number: US-ROCHE-792624

PATIENT
  Sex: Male
  Weight: 81.72 kg

DRUGS (3)
  1. ROWASA SUSPENSION ENEMA [Concomitant]
  2. COLAZAL [Concomitant]
  3. ACCUTANE [Suspect]
     Indication: ACNE
     Route: 065
     Dates: start: 19870101, end: 19881231

REACTIONS (5)
  - ARTHRITIS [None]
  - COLITIS ULCERATIVE [None]
  - EMOTIONAL DISTRESS [None]
  - INFLAMMATORY BOWEL DISEASE [None]
  - IRRITABLE BOWEL SYNDROME [None]
